FAERS Safety Report 8776807 (Version 1)
Quarter: 2012Q4

REPORT INFORMATION
  Report Type: 
  Country: ES (occurrence: ES)
  Receive Date: 20120906
  Receipt Date: 20120906
  Transmission Date: 20130627
  Serious: Yes (Disabling, Other)
  Sender: FDA-Public Use
  Company Number: ES-ELI_LILLY_AND_COMPANY-ES201209000055

PATIENT
  Sex: Female

DRUGS (1)
  1. FORSTEO [Suspect]
     Dosage: UNK
     Dates: start: 20111204

REACTIONS (5)
  - Blindness [Unknown]
  - Emotional distress [Unknown]
  - Apathy [Unknown]
  - Muscular weakness [Unknown]
  - Dizziness [Unknown]
